FAERS Safety Report 9308632 (Version 1)
Quarter: 2013Q2

REPORT INFORMATION
  Report Type: Spontaneous
  Country: US (occurrence: US)
  Receive Date: 20130524
  Receipt Date: 20130524
  Transmission Date: 20140414
  Serious: Yes (Other)
  Sender: FDA-Public Use
  Company Number: US-BAYER-2013-064405

PATIENT
  Sex: Female

DRUGS (3)
  1. XARELTO [Suspect]
     Indication: HIP ARTHROPLASTY
     Dosage: 20 MG, QD
     Route: 048
     Dates: start: 2013, end: 2013
  2. XARELTO [Suspect]
     Indication: THROMBOSIS PROPHYLAXIS
     Route: 048
     Dates: start: 2013
  3. ACETYLSALICYLIC ACID [Suspect]
     Indication: HIP ARTHROPLASTY
     Route: 065

REACTIONS (3)
  - Pulmonary embolism [Unknown]
  - Incorrect dose administered [Recovered/Resolved]
  - Product quality issue [None]
